FAERS Safety Report 9355865 (Version 1)
Quarter: 2013Q2

REPORT INFORMATION
  Report Type: Spontaneous
  Country: IN (occurrence: IN)
  Receive Date: 20130619
  Receipt Date: 20130619
  Transmission Date: 20140414
  Serious: Yes (Other)
  Sender: FDA-Public Use
  Company Number: IN-ROXANE LABORATORIES, INC.-2013-RO-00963RO

PATIENT
  Age: 33 Year
  Sex: Male
  Weight: 66 kg

DRUGS (5)
  1. PREDNISONE [Suspect]
     Indication: RENAL TRANSPLANT
     Dosage: 2.5 MG
  2. MYCOPHENOLATE MOFETIL [Suspect]
     Indication: RENAL TRANSPLANT
     Dosage: 500 MG
  3. SIROLIMUS [Suspect]
     Indication: RENAL TRANSPLANT
     Dosage: 1 MG
     Dates: start: 200404
  4. ATORVASTATIN [Suspect]
     Indication: RENAL TRANSPLANT
     Dosage: 20 MG
  5. CYCLOSPORIN [Suspect]
     Indication: RENAL TRANSPLANT
     Dates: end: 200404

REACTIONS (4)
  - Renal lipomatosis [Not Recovered/Not Resolved]
  - Transplant rejection [Unknown]
  - Pyelonephritis [Unknown]
  - Toxicity to various agents [Unknown]
